FAERS Safety Report 4611354-5 (Version None)
Quarter: 2005Q1

REPORT INFORMATION
  Report Type: 
  Country: None (occurrence: None)
  Receive Date: 20050317
  Receipt Date: 20050307
  Transmission Date: 20050727
  Serious: Yes (Hospitalization)
  Sender: FDA-Public Use
  Company Number: FR-BRISTOL-MYERS SQUIBB COMPANY-12891859

PATIENT
  Age: 78 Year
  Sex: Male
  Weight: 72 kg

DRUGS (8)
  1. COUMADIN [Suspect]
  2. LASILIX [Suspect]
  3. TRACLEER [Suspect]
     Indication: PULMONARY HYPERTENSION
  4. PYOSTACINE [Suspect]
     Indication: ERYSIPELAS
     Dates: start: 20041109, end: 20041124
  5. ARANESP [Suspect]
     Indication: RENAL FAILURE
  6. AMLOR [Suspect]
     Indication: HYPERTENSION
  7. TARDYFERON [Suspect]
  8. LANTUS [Suspect]

REACTIONS (4)
  - ANAEMIA [None]
  - CONDITION AGGRAVATED [None]
  - OEDEMA [None]
  - RENAL FAILURE ACUTE [None]
